FAERS Safety Report 6278593-1 (Version None)
Quarter: 2009Q3

REPORT INFORMATION
  Report Type: 
  Country: None (occurrence: None)
  Receive Date: 20090722
  Receipt Date: 20090109
  Transmission Date: 20100115
  Serious: No
  Sender: FDA-Public Use
  Company Number: US-BAUSCH-2009BL000124

PATIENT
  Age: 82 Year
  Sex: Female
  Weight: 67 kg

DRUGS (5)
  1. OPCON-A [Suspect]
     Indication: EYE ALLERGY
     Route: 047
     Dates: start: 20090107, end: 20090108
  2. COUMADIN [Concomitant]
     Indication: ANTICOAGULANT THERAPY
     Route: 048
     Dates: start: 20030101
  3. COUMADIN [Concomitant]
     Route: 048
     Dates: start: 20030101
  4. LOPRESSOR [Concomitant]
     Indication: HYPERTENSION
     Route: 048
  5. ALDACTONE /USA/ [Concomitant]
     Indication: HYPERTENSION
     Route: 048

REACTIONS (4)
  - DRY EYE [None]
  - EYE DISCHARGE [None]
  - EYE PAIN [None]
  - EYELID PAIN [None]
